FAERS Safety Report 4955559-2 (Version None)
Quarter: 2006Q1

REPORT INFORMATION
  Report Type: 
  Country: None (occurrence: None)
  Receive Date: 20060328
  Receipt Date: 20050801
  Transmission Date: 20060701
  Serious: Yes (Hospitalization)
  Sender: FDA-Public Use
  Company Number: US-MERCK-0508USA00765

PATIENT
  Age: 59 Year
  Sex: Female
  Weight: 100 kg

DRUGS (13)
  1. VIOXX [Suspect]
     Indication: ARTHRITIS
     Route: 048
     Dates: start: 20040325, end: 20040930
  2. ASPIRIN [Concomitant]
     Route: 065
  3. HYDROCODONE BITARTRATE [Concomitant]
     Route: 065
  4. FERROUS SULFATE [Concomitant]
     Route: 065
  5. TRIAMTERENE [Concomitant]
     Route: 065
  6. BENAZEPRIL HYDROCHLORIDE [Concomitant]
     Route: 065
  7. [THERAPY UNSPECIFIED] [Concomitant]
     Route: 065
  8. LEVOXYL [Concomitant]
     Route: 065
  9. DILTIAZEM MALATE [Concomitant]
     Route: 065
  10. TRAMADOL HYDROCHLORIDE [Concomitant]
     Route: 065
  11. ACETAMINOPHEN [Concomitant]
     Route: 065
  12. ACIPHEX [Concomitant]
     Route: 065
  13. LOTENSIN [Concomitant]
     Route: 065

REACTIONS (2)
  - CARDIAC FAILURE CONGESTIVE [None]
  - CARDIOVASCULAR DISORDER [None]
